FAERS Safety Report 10557444 (Version 1)
Quarter: 2014Q4

REPORT INFORMATION
  Report Type: Spontaneous
  Country: US (occurrence: US)
  Receive Date: 20141031
  Receipt Date: 20141031
  Transmission Date: 20150529
  Serious: Yes (Other)
  Sender: FDA-Public Use
  Company Number: US-BAYER-2014-155619

PATIENT
  Age: 79 Year
  Sex: Female
  Weight: 78 kg

DRUGS (2)
  1. CITRACAL MAXIMUM [Suspect]
     Active Substance: CALCIUM CITRATE\CHOLECALCIFEROL
     Dosage: 1 DF, QD WITH FOOD
     Route: 048
     Dates: start: 2010
  2. BAYER LOW DOSE [Suspect]
     Active Substance: ASPIRIN
     Indication: CEREBROVASCULAR ACCIDENT PROPHYLAXIS

REACTIONS (7)
  - Incorrect dose administered [Unknown]
  - Choking [Recovered/Resolved]
  - Retching [Recovered/Resolved]
  - Intentional product misuse [Unknown]
  - Respiratory arrest [Recovered/Resolved]
  - Foreign body [Recovered/Resolved]
  - Oesophageal pain [Recovered/Resolved]
